FAERS Safety Report 8041852-6 (Version None)
Quarter: 2012Q1

REPORT INFORMATION
  Report Type: 
  Country: None (occurrence: None)
  Receive Date: 20120112
  Receipt Date: 20120109
  Transmission Date: 20120608
  Serious: Yes (Other)
  Sender: FDA-Public Use
  Company Number: BR-SANOFI-AVENTIS-2012SA001718

PATIENT
  Sex: Female

DRUGS (1)
  1. APIDRA [Suspect]
     Dosage: FORM: CARTRIDGESTRENGTH:3ML
     Route: 065

REACTIONS (2)
  - MENTAL DISORDER [None]
  - DIABETES MELLITUS INADEQUATE CONTROL [None]
